APPROVED DRUG PRODUCT: BRENZAVVY
Active Ingredient: BEXAGLIFLOZIN
Strength: 20MG
Dosage Form/Route: TABLET;ORAL
Application: N214373 | Product #001
Applicant: THERACOSBIO LLC
Approved: Jan 20, 2023 | RLD: Yes | RS: Yes | Type: RX

PATENTS:
Patent 10533032 | Expires: Jul 3, 2031
Patent 8802637 | Expires: Aug 22, 2028
Patent 8106021 | Expires: Aug 22, 2028
Patent 7838499 | Expires: Jan 30, 2029
Patent 8987323 | Expires: May 14, 2032
Patent 10981942 | Expires: Jun 13, 2031

EXCLUSIVITY:
Code: NCE | Date: Jan 20, 2028